FAERS Safety Report 21569725 (Version 1)
Quarter: 2022Q4

REPORT INFORMATION
  Report Type: Spontaneous
  Country: US (occurrence: US)
  Receive Date: 20221109
  Receipt Date: 20221109
  Transmission Date: 20230112
  Serious: Yes (Other)
  Sender: FDA-Public Use
  Company Number: US-SANOFI-01349300

PATIENT
  Age: 34 Year
  Sex: Male

DRUGS (1)
  1. LANTUS SOLOSTAR [Suspect]
     Active Substance: INSULIN GLARGINE
     Indication: Type 2 diabetes mellitus
     Dosage: 70 UNITS IN THE MORNING AND 30 UNITS AT NIGHT, BID
     Dates: start: 2021

REACTIONS (4)
  - Pancreatitis [Not Recovered/Not Resolved]
  - Infection [Not Recovered/Not Resolved]
  - Abdominal pain upper [Not Recovered/Not Resolved]
  - Inappropriate schedule of product administration [Unknown]
